FAERS Safety Report 6754777-0 (Version None)
Quarter: 2010Q2

REPORT INFORMATION
  Report Type: 
  Country: None (occurrence: None)
  Receive Date: 20100603
  Receipt Date: 20100524
  Transmission Date: 20101027
  Serious: Yes (Death, Life-Threatening, Hospitalization, Disabling, Other)
  Sender: FDA-Public Use
  Company Number: US-BAXTER-2010BH010794

PATIENT
  Age: 65 Year
  Sex: Male
  Weight: 126 kg

DRUGS (1)
  1. DIANEAL [Suspect]
     Indication: PERITONEAL DIALYSIS
     Route: 050
     Dates: start: 20091214, end: 20100422

REACTIONS (8)
  - CEREBROVASCULAR ACCIDENT [None]
  - DECUBITUS ULCER [None]
  - HYPOAESTHESIA [None]
  - MOTOR DYSFUNCTION [None]
  - MUSCULAR WEAKNESS [None]
  - MYOCARDIAL INFARCTION [None]
  - PERITONEAL DIALYSIS COMPLICATION [None]
  - URINARY TRACT INFECTION [None]
